FAERS Safety Report 16262186 (Version 2)
Quarter: 2019Q2

REPORT INFORMATION
  Report Type: Spontaneous
  Country: CA (occurrence: CA)
  Receive Date: 20190501
  Receipt Date: 20190515
  Transmission Date: 20190711
  Serious: Yes (Hospitalization)
  Sender: FDA-Public Use
  Company Number: CA-PFIZER INC-2019181168

PATIENT
  Age: 47 Year
  Sex: Female

DRUGS (5)
  1. SOLU-MEDROL [Suspect]
     Active Substance: METHYLPREDNISOLONE SODIUM SUCCINATE
     Dosage: UNK
     Route: 042
     Dates: start: 20190408
  2. PREDNISONE. [Concomitant]
     Active Substance: PREDNISONE
     Dosage: 30 MG, 1X/DAY
     Route: 048
     Dates: start: 20190418
  3. MORPHINE [Concomitant]
     Active Substance: MORPHINE
     Dosage: 10 MG, EVERY 4 HRS
     Route: 048
  4. INFLECTRA [Concomitant]
     Active Substance: INFLIXIMAB-DYYB
     Dosage: 400 MG, / THEN EVERY 8 WEEKS
     Route: 042
     Dates: start: 20190418
  5. HALDOL [Concomitant]
     Active Substance: HALOPERIDOL
     Dosage: UNK

REACTIONS (5)
  - White blood cell count increased [Unknown]
  - Therapeutic product effect incomplete [Unknown]
  - C-reactive protein abnormal [Unknown]
  - Petechiae [Unknown]
  - Ulcer [Unknown]

NARRATIVE: CASE EVENT DATE: 2019
